FAERS Safety Report 9192254 (Version 2)
Quarter: 2013Q2

REPORT INFORMATION
  Report Type: Report from Study
  Country: US (occurrence: US)
  Receive Date: 20130327
  Receipt Date: 20130418
  Transmission Date: 20140414
  Serious: Yes (Hospitalization)
  Sender: FDA-Public Use
  Company Number: US-JNJFOC-20130212016

PATIENT
  Age: 47 Year
  Sex: Female

DRUGS (11)
  1. REMICADE [Suspect]
     Indication: CROHN^S DISEASE
     Route: 042
     Dates: start: 20121104, end: 201211
  2. SOLU MEDROL [Concomitant]
     Indication: PREMEDICATION
     Route: 042
     Dates: start: 20121104
  3. VITAMIN B12 [Concomitant]
     Route: 065
  4. VITAMIN D [Concomitant]
     Route: 065
  5. CALCIUM [Concomitant]
     Route: 065
  6. IRON [Concomitant]
     Route: 065
  7. APRISO [Concomitant]
     Route: 065
  8. MULTIPLE VITAMINS [Concomitant]
     Route: 065
  9. VITAMIN A [Concomitant]
     Route: 065
  10. VITAMIN B [Concomitant]
     Route: 065
  11. BENADRYL [Concomitant]
     Indication: PREMEDICATION
     Route: 042
     Dates: start: 20121104

REACTIONS (7)
  - Drug specific antibody present [Unknown]
  - Heart rate increased [Recovered/Resolved]
  - Pyrexia [Recovered/Resolved]
  - Pain in extremity [Recovering/Resolving]
  - Malaise [Recovering/Resolving]
  - Palpitations [Recovered/Resolved]
  - Myalgia [Recovered/Resolved]
